FAERS Safety Report 20280560 (Version 1)
Quarter: 2022Q1

REPORT INFORMATION
  Report Type: Spontaneous
  Country: FI (occurrence: FI)
  Receive Date: 20220103
  Receipt Date: 20220103
  Transmission Date: 20220423
  Serious: Yes (Hospitalization)
  Sender: FDA-Public Use
  Company Number: FI-KRKA-FI2021K16692SPO

PATIENT
  Age: 59 Year
  Sex: Female

DRUGS (15)
  1. ARIPIPRAZOLE [Suspect]
     Active Substance: ARIPIPRAZOLE
     Indication: Schizoaffective disorder
     Dosage: UNK
     Route: 065
  2. OLANZAPINE [Suspect]
     Active Substance: OLANZAPINE
     Indication: Schizoaffective disorder
     Dosage: 30 MG, PER DAY
     Route: 065
     Dates: start: 2010
  3. OLANZAPINE [Suspect]
     Active Substance: OLANZAPINE
     Dosage: UNK
     Route: 048
  4. OLANZAPINE [Suspect]
     Active Substance: OLANZAPINE
     Indication: Schizoaffective disorder
     Dosage: 30 MG, PER DAY
     Route: 065
     Dates: start: 2010
  5. OLANZAPINE [Suspect]
     Active Substance: OLANZAPINE
     Dosage: UNK
     Route: 065
  6. ZUCLOPENTHIXOL [Suspect]
     Active Substance: ZUCLOPENTHIXOL
     Indication: Insomnia
     Dosage: 10 MG
     Route: 065
     Dates: start: 20211007, end: 20211026
  7. QUETIAPINE FUMARATE [Suspect]
     Active Substance: QUETIAPINE FUMARATE
     Indication: Schizoaffective disorder
     Dosage: UNK
     Route: 065
  8. LITHIUM CARBONATE [Suspect]
     Active Substance: LITHIUM CARBONATE
     Indication: Schizoaffective disorder
     Dosage: ACCORDING TO PLASMA CONCENTRATIONS
     Route: 065
  9. LITHIUM CARBONATE [Suspect]
     Active Substance: LITHIUM CARBONATE
     Dosage: 300 MG 1+2
     Route: 065
  10. LITHIUM CARBONATE [Suspect]
     Active Substance: LITHIUM CARBONATE
     Dosage: 300 MG 1+1?
     Route: 065
  11. CLOZAPINE [Concomitant]
     Active Substance: CLOZAPINE
     Indication: Schizoaffective disorder
     Dosage: THE DOSE WAS SLOWLY INCREASED UP TO 200 MG/DAY
     Route: 065
     Dates: start: 20211103, end: 20211112
  12. CLOZAPINE [Concomitant]
     Active Substance: CLOZAPINE
     Dosage: 25 MG, IN THE EVENING
     Route: 048
     Dates: start: 20211018
  13. METFORMIN HYDROCHLORIDE [Concomitant]
     Active Substance: METFORMIN HYDROCHLORIDE
     Indication: Product used for unknown indication
     Dosage: 500 MG, 1X PER DAY
     Route: 065
     Dates: start: 2019
  14. TENOX [TEMAZEPAM] [Concomitant]
     Indication: Product used for unknown indication
     Dosage: 20 MG, ?-2X1, AS NEEDED
     Route: 065
     Dates: start: 20210928
  15. TENOX [TEMAZEPAM] [Concomitant]
     Dosage: 20 MG, ?-1X1, AS NEEDED
     Route: 065
     Dates: start: 20210924

REACTIONS (4)
  - Delusion [Unknown]
  - Insomnia [Unknown]
  - Drug ineffective [Unknown]
  - Product use in unapproved indication [Unknown]
